FAERS Safety Report 7497102-2 (Version None)
Quarter: 2011Q2

REPORT INFORMATION
  Report Type: 
  Country: None (occurrence: None)
  Receive Date: 20110523
  Receipt Date: 20110512
  Transmission Date: 20111010
  Serious: Yes (Hospitalization)
  Sender: FDA-Public Use
  Company Number: IT-ASTRAZENECA-2009SE01051

PATIENT
  Age: 22192 Day
  Sex: Female
  Weight: 83 kg

DRUGS (2)
  1. GEMCITABINE [Suspect]
     Indication: BILIARY CANCER METASTATIC
     Dosage: 1790
     Route: 042
     Dates: start: 20081021, end: 20090209
  2. VANDETANIB [Suspect]
     Indication: BILIARY CANCER METASTATIC
     Route: 048
     Dates: start: 20081021, end: 20090222

REACTIONS (1)
  - PULMONARY HYPERTENSION [None]
